FAERS Safety Report 9948874 (Version 1)
Quarter: 2014Q1

REPORT INFORMATION
  Report Type: Spontaneous
  Country: FR (occurrence: FR)
  Receive Date: 20140304
  Receipt Date: 20140304
  Transmission Date: 20141002
  Serious: Yes (Hospitalization)
  Sender: FDA-Public Use
  Company Number: FR-ACCORD-022294

PATIENT
  Age: 78 Year
  Sex: Male

DRUGS (13)
  1. FLUOROURACIL [Suspect]
     Indication: COLON CANCER METASTATIC
     Dosage: 34 COURSES (FROM J1 TO J15)
     Route: 042
     Dates: start: 20120801, end: 20131218
  2. IRINOTECAN [Suspect]
     Indication: COLON CANCER METASTATIC
     Dosage: 34 COURSES (FROM J1 TO J15)
     Route: 042
     Dates: start: 20120801, end: 20131218
  3. ONDANSETRON [Concomitant]
     Indication: PREMEDICATION
  4. UROREC [Concomitant]
  5. PERMIXON [Concomitant]
  6. EUCREAS [Concomitant]
     Dosage: 50 MG/1000 MG
  7. METHYLPREDNISOLONE [Concomitant]
     Indication: PREMEDICATION
  8. ATROPINE [Concomitant]
     Indication: PREMEDICATION
  9. APREPITANT [Concomitant]
     Indication: PREMEDICATION
  10. GLIMEPIRIDE [Concomitant]
  11. AMLODIPINE [Concomitant]
  12. FOLINIC ACID [Concomitant]
     Dosage: 34 COURSES
     Dates: end: 20131218
  13. AVASTIN [Suspect]
     Indication: COLON CANCER METASTATIC
     Dosage: 25 MG/ML
     Route: 042
     Dates: start: 20120801, end: 20131218

REACTIONS (4)
  - Pulmonary arterial hypertension [Not Recovered/Not Resolved]
  - Cardiac failure [Unknown]
  - Skin ulcer [Unknown]
  - Ejection fraction decreased [Not Recovered/Not Resolved]
